FAERS Safety Report 15369155 (Version 1)
Quarter: 2018Q3

REPORT INFORMATION
  Report Type: Spontaneous
  Country: FR (occurrence: FR)
  Receive Date: 20180911
  Receipt Date: 20180911
  Transmission Date: 20181010
  Serious: Yes (Life-Threatening, Hospitalization)
  Sender: FDA-Public Use
  Company Number: FR-TEVA-2018-FR-930902

PATIENT
  Age: 63 Year

DRUGS (6)
  1. INEXIUM 20 MG, GASTRO?RESISTANT TABLET [Concomitant]
     Active Substance: ESOMEPRAZOLE MAGNESIUM
  2. NICOPATCH [Concomitant]
     Active Substance: NICOTINE
     Route: 065
  3. SIMVASTATINE [Concomitant]
     Active Substance: SIMVASTATIN
     Route: 065
  4. KARDEGIC 160 MG, POWDER FOR ORAL SOLUTION IN SACHETS [Concomitant]
     Route: 065
  5. METFORMIN [Suspect]
     Active Substance: METFORMIN HYDROCHLORIDE
     Indication: TYPE 2 DIABETES MELLITUS
     Dosage: 1000 MILLIGRAM DAILY;
     Route: 048
     Dates: end: 20180603
  6. PERINDOPRIL [Concomitant]
     Active Substance: PERINDOPRIL
     Route: 065

REACTIONS (2)
  - Hypovolaemic shock [Recovered/Resolved]
  - Lactic acidosis [Recovered/Resolved]

NARRATIVE: CASE EVENT DATE: 20180603
